FAERS Safety Report 6206329-9 (Version None)
Quarter: 2009Q2

REPORT INFORMATION
  Report Type: 
  Country: None (occurrence: None)
  Receive Date: 20090528
  Receipt Date: 20090519
  Transmission Date: 20091009
  Serious: Yes (Disabling, Other)
  Sender: FDA-Public Use
  Company Number: PHHY2009FR12771

PATIENT
  Sex: Female

DRUGS (1)
  1. ZOMETA [Suspect]
     Indication: METASTASES TO BONE
     Dosage: UNK
     Dates: start: 20061201, end: 20080301

REACTIONS (6)
  - DEBRIDEMENT [None]
  - DENTAL PROSTHESIS USER [None]
  - GINGIVAL OPERATION [None]
  - IMPAIRED HEALING [None]
  - OSTEONECROSIS [None]
  - SURGERY [None]
